FAERS Safety Report 14894409 (Version 1)
Quarter: 2018Q2

REPORT INFORMATION
  Report Type: Spontaneous
  Country: FR (occurrence: FR)
  Receive Date: 20180515
  Receipt Date: 20180515
  Transmission Date: 20180711
  Serious: Yes (Hospitalization)
  Sender: FDA-Public Use
  Company Number: FR-TEVA-2018-FR-892816

PATIENT
  Age: 82 Year
  Sex: Female
  Weight: 56 kg

DRUGS (2)
  1. GLIVEC [Suspect]
     Active Substance: IMATINIB MESYLATE
     Indication: GASTROINTESTINAL STROMAL CANCER
     Dosage: 400 MILLIGRAM DAILY;
     Route: 048
     Dates: start: 201710
  2. LANSOPRAZOLE. [Suspect]
     Active Substance: LANSOPRAZOLE
     Indication: GASTROINTESTINAL STROMAL CANCER
     Dosage: 30 MILLIGRAM DAILY;
     Route: 048
     Dates: start: 201704

REACTIONS (4)
  - Eosinophilia [Recovering/Resolving]
  - Toxic skin eruption [Recovering/Resolving]
  - Pleural effusion [Recovering/Resolving]
  - Pyrexia [Recovered/Resolved]

NARRATIVE: CASE EVENT DATE: 20171129
